FAERS Safety Report 4363963-9 (Version None)
Quarter: 2004Q2

REPORT INFORMATION
  Report Type: 
  Country: None (occurrence: None)
  Receive Date: 20040525
  Receipt Date: 20040514
  Transmission Date: 20050107
  Serious: Yes (Hospitalization)
  Sender: FDA-Public Use
  Company Number: US-BRISTOL-MYERS SQUIBB COMPANY-12587242

PATIENT
  Age: 45 Year
  Sex: Female

DRUGS (13)
  1. PACLITAXEL [Suspect]
     Indication: NON-SMALL CELL LUNG CANCER
     Dosage: DAY 1 C1: 254 MG ON 11-FEB-2004 C2: 344 MG ON 03-MAR-2004
     Route: 042
     Dates: start: 20040324, end: 20040324
  2. CARBOPLATIN [Suspect]
     Indication: NON-SMALL CELL LUNG CANCER
     Dosage: DAY 1 C1: 578 MG ON 11-FEB-2004 C2: 666 MG ON 03-MAR-2004
     Route: 042
     Dates: start: 20040324, end: 20040324
  3. ALPRAZOLAM [Concomitant]
     Dates: start: 20040101
  4. PROCHLORPERAZINE [Concomitant]
     Dates: start: 20040101
  5. PROMETHAZINE HCL [Concomitant]
     Dates: start: 20040101
  6. DEXAMETHASONE [Concomitant]
     Dates: start: 20040211, end: 20040324
  7. RANITIDINE HCL [Concomitant]
     Dates: start: 20040211, end: 20040324
  8. DIPHENHYDRAMINE HCL [Concomitant]
     Dates: start: 20040211
  9. ONDANSETRON HCL [Concomitant]
     Dates: start: 20040211, end: 20040324
  10. EPOGEN [Concomitant]
     Dates: start: 20040304
  11. EMEND [Concomitant]
     Dates: start: 20040303
  12. PANTOPRAZOLE [Concomitant]
     Dates: start: 20040308
  13. MORPHINE SULFATE [Concomitant]
     Dates: start: 20040310

REACTIONS (2)
  - DEEP VEIN THROMBOSIS [None]
  - PULMONARY EMBOLISM [None]
